FAERS Safety Report 9213157 (Version 2)
Quarter: 2013Q2

REPORT INFORMATION
  Report Type: Report from Study
  Country: US (occurrence: US)
  Receive Date: 20130405
  Receipt Date: 20130503
  Transmission Date: 20140414
  Serious: Yes (Hospitalization)
  Sender: FDA-Public Use
  Company Number: US-JNJFOC-20130317945

PATIENT
  Age: 16 Year
  Sex: Male
  Weight: 51.35 kg

DRUGS (15)
  1. REMICADE [Suspect]
     Indication: INFLAMMATORY BOWEL DISEASE
     Route: 042
     Dates: start: 20100823, end: 20110820
  2. CIMZIA [Suspect]
     Indication: INFLAMMATORY BOWEL DISEASE
     Route: 065
     Dates: start: 20120330
  3. ATIVAN [Concomitant]
     Route: 065
  4. CELEXA [Concomitant]
     Route: 065
  5. PRILOSEC [Concomitant]
     Route: 065
  6. MULTIVITAMINS [Concomitant]
     Route: 065
  7. CALCIUM WITH VITAMIN D [Concomitant]
     Route: 065
  8. IMODIUM [Concomitant]
     Route: 065
  9. NIFEREX [Concomitant]
     Route: 065
  10. COLESTID [Concomitant]
     Route: 065
  11. MELATONIN [Concomitant]
     Route: 065
  12. TRAZODONE [Concomitant]
     Route: 065
  13. IBUPROFEN [Concomitant]
     Route: 065
  14. PERCOCET [Concomitant]
     Route: 065
  15. BENEFIBER [Concomitant]
     Route: 065

REACTIONS (1)
  - Small intestinal obstruction [Recovered/Resolved]
